FAERS Safety Report 6510866-7 (Version None)
Quarter: 2009Q4

REPORT INFORMATION
  Report Type: 
  Country: None (occurrence: None)
  Receive Date: 20091222
  Receipt Date: 20090113
  Transmission Date: 20100525
  Serious: No
  Sender: FDA-Public Use
  Company Number: US-ASTRAZENECA-2009UW01142

PATIENT
  Age: 88 Year
  Sex: Female
  Weight: 65.8 kg

DRUGS (5)
  1. CRESTOR [Suspect]
     Indication: BLOOD CHOLESTEROL INCREASED
     Route: 048
     Dates: start: 20080901
  2. SPIRONOLACTONE [Concomitant]
  3. BABY ASPIRIN [Concomitant]
  4. MIRALAX [Concomitant]
  5. HYDROCHLOROTHIAZIDE [Concomitant]

REACTIONS (3)
  - HAIR COLOUR CHANGES [None]
  - PAIN IN EXTREMITY [None]
  - PRURITUS [None]
